FAERS Safety Report 9522743 (Version 2)
Quarter: 2013Q4

REPORT INFORMATION
  Report Type: Report from Study
  Country: KR (occurrence: KR)
  Receive Date: 20130913
  Receipt Date: 20131219
  Transmission Date: 20140711
  Serious: Yes (Hospitalization)
  Sender: FDA-Public Use
  Company Number: KR-EISAI INC-E7389-04158-CLI-KR

PATIENT
  Age: 70 Year
  Sex: Female
  Weight: 63 kg

DRUGS (7)
  1. E7389 (BOLD) [Suspect]
     Indication: BREAST CANCER
     Route: 041
     Dates: start: 20130812, end: 20130819
  2. E7389 (BOLD) [Suspect]
     Route: 041
     Dates: start: 20130909, end: 20130916
  3. E7389 (BOLD) [Suspect]
     Route: 041
     Dates: start: 20131001, end: 20131029
  4. PREGABALIN [Concomitant]
     Indication: NEUROPATHY PERIPHERAL
     Route: 048
     Dates: start: 20121024
  5. MAGNESIUM OXIDE [Concomitant]
     Indication: CONSTIPATION
     Route: 048
     Dates: start: 20121024
  6. AMLODIPINE BESYLATE [Concomitant]
     Indication: HYPERTENSION
     Route: 048
     Dates: start: 20121129
  7. SOXINASE [Concomitant]
     Indication: DYSPEPSIA
     Route: 048
     Dates: start: 20121129

REACTIONS (1)
  - Septic shock [Recovered/Resolved]
